FAERS Safety Report 5750294-5 (Version None)
Quarter: 2008Q2

REPORT INFORMATION
  Report Type: 
  Country: None (occurrence: None)
  Receive Date: 20080522
  Receipt Date: 20080522
  Transmission Date: 20081010
  Serious: Yes (Life-Threatening, Hospitalization)
  Sender: FDA-Public Use
  Company Number: None

PATIENT
  Age: 61 Year
  Sex: Female
  Weight: 85.7298 kg

DRUGS (2)
  1. DIGITEK  .125MG  AMIDE -BERTEK- [Suspect]
     Indication: TACHYCARDIA
     Dosage: 1 TABLET DAILY PO
     Route: 048
     Dates: start: 19951001, end: 20080506
  2. DIGITEK  .125MG   AMIDE -BERTEK- [Suspect]

REACTIONS (21)
  - AMNESIA [None]
  - ANOREXIA [None]
  - ARTERIAL DISORDER [None]
  - ASTHENIA [None]
  - BALANCE DISORDER [None]
  - CENTRAL NERVOUS SYSTEM LESION [None]
  - CONDITION AGGRAVATED [None]
  - DIZZINESS [None]
  - FALL [None]
  - FATIGUE [None]
  - FEELING ABNORMAL [None]
  - IMPAIRED WORK ABILITY [None]
  - JOINT INJURY [None]
  - LACERATION [None]
  - MYOSITIS [None]
  - NAUSEA [None]
  - PHARMACEUTICAL PRODUCT COMPLAINT [None]
  - RIB FRACTURE [None]
  - SOMNOLENCE [None]
  - VISUAL DISTURBANCE [None]
  - WEIGHT DECREASED [None]
